FAERS Safety Report 7931191-3 (Version None)
Quarter: 2011Q4

REPORT INFORMATION
  Report Type: 
  Country: None (occurrence: None)
  Receive Date: 20111118
  Receipt Date: 20111118
  Transmission Date: 20120403
  Serious: Yes (Life-Threatening, Hospitalization, Other)
  Sender: FDA-Public Use
  Company Number: None

PATIENT
  Age: 62 Year
  Sex: Female
  Weight: 53.978 kg

DRUGS (1)
  1. CLINDAMYCIN [Suspect]
     Indication: EAR INFECTION
     Dosage: 1 CAPSULE 4X DAILY ORALLY
     Dates: start: 20110802, end: 20110807

REACTIONS (5)
  - NAUSEA [None]
  - CLOSTRIDIUM COLITIS [None]
  - VOMITING [None]
  - FATIGUE [None]
  - DECREASED APPETITE [None]
